FAERS Safety Report 4812146-4 (Version None)
Quarter: 2005Q4

REPORT INFORMATION
  Report Type: 
  Country: None (occurrence: None)
  Receive Date: 20051028
  Receipt Date: 20051018
  Transmission Date: 20060501
  Serious: Yes (Other)
  Sender: FDA-Public Use
  Company Number: GB-ABBOTT-05P-167-0314483-00

PATIENT
  Age: 24 Year
  Sex: Female
  Weight: 59.4 kg

DRUGS (5)
  1. CLARITHROMYCIN [Suspect]
     Indication: INFECTION
     Route: 048
     Dates: start: 20051005, end: 20051006
  2. DICLOFENAC [Concomitant]
     Indication: ANALGESIC EFFECT
     Route: 048
     Dates: start: 20051004
  3. HYDROXYCHLOROQUINE SULFATE [Concomitant]
     Indication: SYSTEMIC LUPUS ERYTHEMATOSUS
     Route: 048
     Dates: start: 20051004
  4. CIPROFLOXACIN [Concomitant]
     Indication: INFECTION
     Route: 048
     Dates: start: 20051004
  5. LOPERAMIDE [Concomitant]
     Indication: DRUG USE FOR UNKNOWN INDICATION
     Route: 048
     Dates: start: 20051004

REACTIONS (5)
  - ABDOMINAL DISCOMFORT [None]
  - ERYTHEMA [None]
  - HALLUCINATION [None]
  - SWELLING [None]
  - TREMOR [None]
